FAERS Safety Report 9629403 (Version 1)
Quarter: 2013Q4

REPORT INFORMATION
  Report Type: Spontaneous
  Country: US (occurrence: US)
  Receive Date: 20131017
  Receipt Date: 20131017
  Transmission Date: 20140711
  Serious: No
  Sender: FDA-Public Use
  Company Number: US-ASTRAZENECA-2013SE53464

PATIENT
  Age: 57 Year
  Sex: Female
  Weight: 86.2 kg

DRUGS (6)
  1. CRESTOR [Suspect]
     Indication: BLOOD CHOLESTEROL INCREASED
     Route: 048
     Dates: end: 201301
  2. SYNTHROID [Concomitant]
     Indication: THYROID DISORDER
     Route: 048
     Dates: start: 1988
  3. METFORMIN [Concomitant]
     Indication: GLUCOSE TOLERANCE IMPAIRED
     Route: 048
  4. XANAX [Concomitant]
     Indication: SLEEP DISORDER
     Route: 048
  5. ATORVASTATIN [Concomitant]
     Dates: start: 201301
  6. LIPITOR [Concomitant]

REACTIONS (5)
  - Heart rate abnormal [Not Recovered/Not Resolved]
  - Rash [Recovering/Resolving]
  - Blood triglycerides increased [Unknown]
  - High density lipoprotein decreased [Unknown]
  - Drug ineffective [Unknown]
